FAERS Safety Report 7683152-X (Version None)
Quarter: 2011Q3

REPORT INFORMATION
  Report Type: 
  Country: None (occurrence: None)
  Receive Date: 20110815
  Receipt Date: 20110802
  Transmission Date: 20111222
  Serious: Yes (Other)
  Sender: FDA-Public Use
  Company Number: CH-UCBSA-038279

PATIENT
  Sex: Female

DRUGS (2)
  1. CIMZIA [Suspect]
     Indication: CROHN'S DISEASE
     Dosage: PREVIOUS INDUCTION DOSE
     Route: 058
  2. NO CONCOMITANT MEDICATION [Concomitant]

REACTIONS (3)
  - PEMPHIGOID [None]
  - DERMATITIS BULLOUS [None]
  - BLISTER [None]
